FAERS Safety Report 25345412 (Version 1)
Quarter: 2025Q2

REPORT INFORMATION
  Report Type: Spontaneous
  Country: FR (occurrence: FR)
  Receive Date: 20250522
  Receipt Date: 20250522
  Transmission Date: 20250716
  Serious: Yes (Other)
  Sender: AUROBINDO
  Company Number: FR-AFSSAPS-PB2025000549

PATIENT
  Age: 47 Year
  Sex: Female

DRUGS (1)
  1. MOXIFLOXACIN [Suspect]
     Active Substance: MOXIFLOXACIN
     Indication: Product used for unknown indication
     Route: 048
     Dates: start: 202410

REACTIONS (5)
  - Anaphylactic reaction [Recovered/Resolved]
  - Oral pruritus [Recovered/Resolved]
  - Erythema [Recovered/Resolved]
  - Vomiting [Recovered/Resolved]
  - Malaise [Recovered/Resolved]

NARRATIVE: CASE EVENT DATE: 20241001
